FAERS Safety Report 7291174-6 (Version None)
Quarter: 2011Q1

REPORT INFORMATION
  Report Type: 
  Country: None (occurrence: None)
  Receive Date: 20110214
  Receipt Date: 20110204
  Transmission Date: 20110831
  Serious: Yes (Hospitalization)
  Sender: FDA-Public Use
  Company Number: JP-MERCK-1102USA00104

PATIENT
  Age: 79 Year
  Sex: Male

DRUGS (10)
  1. MEZOLMIN [Concomitant]
     Route: 048
     Dates: start: 20030318
  2. AMOBAN [Concomitant]
     Route: 048
     Dates: start: 20030318
  3. MERISLON [Concomitant]
     Route: 048
     Dates: start: 20030318
  4. PRORENAL [Concomitant]
     Route: 048
     Dates: start: 20050706
  5. OLMETEC [Suspect]
     Route: 048
     Dates: start: 20061003, end: 20110125
  6. LULU A NEW TABLETS [Concomitant]
     Route: 065
  7. PEPCID RPD [Suspect]
     Route: 048
     Dates: start: 20080108, end: 20110125
  8. METHYCOBAL [Concomitant]
     Route: 048
     Dates: start: 20030318
  9. JUVELA N [Concomitant]
     Route: 048
     Dates: start: 20030318
  10. AMLODIPINE BESYLATE [Concomitant]
     Route: 048
     Dates: start: 20030318

REACTIONS (1)
  - RHABDOMYOLYSIS [None]
